APPROVED DRUG PRODUCT: PROLIXIN
Active Ingredient: FLUPHENAZINE HYDROCHLORIDE
Strength: 5MG/ML
Dosage Form/Route: CONCENTRATE;ORAL
Application: A070533 | Product #001
Applicant: APOTHECON INC DIV BRISTOL MYERS SQUIBB
Approved: Nov 7, 1985 | RLD: No | RS: No | Type: DISCN